FAERS Safety Report 19170521 (Version 3)
Quarter: 2021Q2

REPORT INFORMATION
  Report Type: Report from Study
  Country: CA (occurrence: CA)
  Receive Date: 20210422
  Receipt Date: 20210618
  Transmission Date: 20210717
  Serious: Yes (Other)
  Sender: FDA-Public Use
  Company Number: CA-EISAI MEDICAL RESEARCH-EC-2021-091484

PATIENT
  Age: 19 Year
  Sex: Male

DRUGS (14)
  1. COSENTYX [Suspect]
     Active Substance: SECUKINUMAB
     Indication: ANKYLOSING SPONDYLITIS
     Route: 058
  2. OXYCODONE HYDROCHLORIDE. [Suspect]
     Active Substance: OXYCODONE HYDROCHLORIDE
     Indication: PAIN
     Dosage: UNKNOWN
     Route: 065
  3. IBUPROFEN. [Concomitant]
     Active Substance: IBUPROFEN
  4. PARIET [Suspect]
     Active Substance: RABEPRAZOLE SODIUM
     Indication: PRODUCT USED FOR UNKNOWN INDICATION
     Route: 048
  5. METHOTREXATE. [Suspect]
     Active Substance: METHOTREXATE
     Indication: PRODUCT USED FOR UNKNOWN INDICATION
     Dosage: UNKNOWN
     Route: 065
  6. HUMIRA [Concomitant]
     Active Substance: ADALIMUMAB
     Route: 058
  7. IBUPROFEN. [Concomitant]
     Active Substance: IBUPROFEN
  8. PREDNISONE. [Concomitant]
     Active Substance: PREDNISONE
  9. SULFASALAZINE. [Concomitant]
     Active Substance: SULFASALAZINE
  10. NAPROXEN. [Concomitant]
     Active Substance: NAPROXEN
  11. VITAMIN D3 [Concomitant]
     Active Substance: CHOLECALCIFEROL
  12. SIMPONI [Concomitant]
     Active Substance: GOLIMUMAB
     Route: 058
  13. FOLIC ACID. [Concomitant]
     Active Substance: FOLIC ACID
  14. REMICADE [Concomitant]
     Active Substance: INFLIXIMAB
     Route: 041

REACTIONS (13)
  - Uveitis [Unknown]
  - Drug ineffective [Unknown]
  - Acne [Unknown]
  - Ankylosing spondylitis [Unknown]
  - Arthropathy [Unknown]
  - Influenza [Unknown]
  - Pain in extremity [Unknown]
  - Scab [Unknown]
  - Vomiting [Unknown]
  - Pyrexia [Unknown]
  - Nasopharyngitis [Unknown]
  - Cough [Unknown]
  - Oropharyngeal pain [Unknown]
